FAERS Safety Report 9470314 (Version 1)
Quarter: 2013Q3

REPORT INFORMATION
  Report Type: Spontaneous
  Country: US (occurrence: US)
  Receive Date: 20130822
  Receipt Date: 20130822
  Transmission Date: 20140515
  Serious: No
  Sender: FDA-Public Use
  Company Number: US-SANOFI-AVENTIS-2012SA072277

PATIENT
  Age: 76 Year
  Sex: Male
  Weight: 77 kg

DRUGS (10)
  1. MULTAQ [Suspect]
     Indication: PRODUCT USED FOR UNKNOWN INDICATION
     Route: 065
  2. ASPIRIN [Concomitant]
     Route: 065
  3. LASIX [Concomitant]
     Route: 065
  4. SYNTHROID [Concomitant]
     Route: 065
  5. LISINOPRIL [Concomitant]
     Route: 065
  6. ALDACTONE [Concomitant]
     Route: 065
  7. COREG [Concomitant]
     Route: 065
  8. OMEPRAZOLE [Concomitant]
     Route: 065
  9. LEVSIN [Concomitant]
     Route: 065
  10. DIGOXIN [Concomitant]
     Route: 065

REACTIONS (2)
  - Injury [Not Recovered/Not Resolved]
  - Abdominal discomfort [Unknown]
